FAERS Safety Report 8282987-2 (Version None)
Quarter: 2012Q2

REPORT INFORMATION
  Report Type: 
  Country: None (occurrence: None)
  Receive Date: 20120413
  Receipt Date: 20120405
  Transmission Date: 20120825
  Serious: Yes (Hospitalization, Other)
  Sender: FDA-Public Use
  Company Number: US-BAYER-2011-085662

PATIENT
  Age: 55 Year
  Sex: Female
  Weight: 63.492 kg

DRUGS (12)
  1. SYNTHROID [Concomitant]
     Indication: THYROID CANCER
     Dosage: UNK UNK, QD
     Route: 048
  2. PROVENTIL [Concomitant]
     Indication: ASTHMA
     Dosage: UNK
  3. CIPROFLOXACIN HCL [Concomitant]
     Indication: URINARY TRACT INFECTION
     Dosage: 500 MG, BID
     Route: 048
     Dates: start: 20110414
  4. ALESSE [Concomitant]
     Dosage: UNK
     Dates: start: 20060823
  5. ADVAIR DISKUS 100/50 [Concomitant]
     Indication: ASTHMA
     Dosage: UNK
  6. ALESSE [Concomitant]
     Dosage: UNK
     Dates: start: 20060317
  7. DELESTROGEN [Concomitant]
     Dosage: 25 MG, UNK
  8. LEVORA 0.15/30-21 [Concomitant]
     Dosage: UNK
     Dates: start: 20060823
  9. DEPO-MEDROL [Concomitant]
     Dosage: 80 MG, UNK
     Route: 030
  10. YASMIN [Suspect]
     Dosage: UNK
     Route: 048
     Dates: start: 20040901, end: 20060101
  11. MEGACE [Concomitant]
     Dosage: UNK
     Dates: end: 20081201
  12. IMITREX [Concomitant]

REACTIONS (6)
  - CHOLECYSTITIS CHRONIC [None]
  - ANXIETY [None]
  - GALLBLADDER DISORDER [None]
  - PAIN [None]
  - PSYCHOLOGICAL TRAUMA [None]
  - EMOTIONAL DISTRESS [None]
